FAERS Safety Report 10092251 (Version 2)
Quarter: 2014Q2

REPORT INFORMATION
  Report Type: Spontaneous
  Country: US (occurrence: US)
  Receive Date: 20140421
  Receipt Date: 20140421
  Transmission Date: 20141212
  Serious: No
  Sender: FDA-Public Use
  Company Number: US-SANOFI-AVENTIS-2013SA025696

PATIENT
  Age: 65 Year
  Sex: Female

DRUGS (5)
  1. ALLEGRA [Suspect]
     Indication: URTICARIA
     Route: 048
     Dates: start: 20130306
  2. ALLEGRA [Suspect]
     Indication: URTICARIA
     Route: 048
     Dates: start: 20130306
  3. ALLEGRA [Suspect]
     Indication: URTICARIA
     Route: 048
     Dates: start: 20130306
  4. ALLEGRA [Suspect]
     Indication: URTICARIA
     Route: 048
     Dates: start: 20130306
  5. PREDNISONE [Concomitant]

REACTIONS (3)
  - Foreign body [Unknown]
  - Cough [Recovered/Resolved]
  - Retching [Unknown]
